FAERS Safety Report 6216691-9 (Version None)
Quarter: 2009Q2

REPORT INFORMATION
  Report Type: 
  Country: None (occurrence: None)
  Receive Date: 20090605
  Receipt Date: 20090602
  Transmission Date: 20091009
  Serious: Yes (Hospitalization)
  Sender: FDA-Public Use
  Company Number: FR-ABBOTT-09P-056-0576615-00

PATIENT
  Age: 25 Year
  Sex: Male

DRUGS (1)
  1. HUMIRA [Suspect]
     Indication: COLITIS
     Dosage: 160MG LOADING DOSE
     Route: 058
     Dates: start: 20090525

REACTIONS (3)
  - CHILLS [None]
  - PNEUMONIA PNEUMOCOCCAL [None]
  - PYREXIA [None]
